FAERS Safety Report 9148691 (Version 1)
Quarter: 2013Q1

REPORT INFORMATION
  Report Type: Spontaneous
  Country: US (occurrence: US)
  Receive Date: 20130308
  Receipt Date: 20130308
  Transmission Date: 20140127
  Serious: No
  Sender: FDA-Public Use
  Company Number: US-ENDO PHARMACEUTICALS INC.-OPCR20122086

PATIENT
  Age: 45 None
  Sex: Male

DRUGS (5)
  1. OPANA ER [Suspect]
     Indication: PAIN
     Route: 048
     Dates: start: 2012, end: 201210
  2. OPANA ER [Suspect]
     Route: 048
     Dates: start: 201210
  3. OPANA ER [Suspect]
     Route: 048
     Dates: end: 20130112
  4. PERCOCET [Concomitant]
     Indication: BREAKTHROUGH PAIN
     Dosage: UNK
     Route: 048
  5. OXYMORPHONE HYDROCHLORIDE [Concomitant]
     Indication: PRODUCT USED FOR UNKNOWN INDICATION
     Route: 048

REACTIONS (3)
  - Bradyphrenia [Unknown]
  - Withdrawal syndrome [Unknown]
  - Drug effect incomplete [Unknown]
